FAERS Safety Report 7763164-8 (Version None)
Quarter: 2011Q3

REPORT INFORMATION
  Report Type: 
  Country: None (occurrence: None)
  Receive Date: 20110920
  Receipt Date: 20110912
  Transmission Date: 20111222
  Serious: Yes (Other)
  Sender: FDA-Public Use
  Company Number: PHHY2011DE48292

PATIENT
  Age: 43 Year
  Sex: Male

DRUGS (1)
  1. CLOZAPINE [Suspect]
     Indication: PSYCHOTIC DISORDER
     Dosage: 200 MG, DAY

REACTIONS (15)
  - CARDIAC DISORDER [None]
  - COMPLEMENT FACTOR C3 INCREASED [None]
  - MYOCARDITIS [None]
  - INTERLEUKIN LEVEL INCREASED [None]
  - CYANOSIS [None]
  - CARDIOPULMONARY FAILURE [None]
  - VENTRICULAR DYSKINESIA [None]
  - ALPHA TUMOUR NECROSIS FACTOR INCREASED [None]
  - C-REACTIVE PROTEIN INCREASED [None]
  - HALLUCINATION [None]
  - DELUSION [None]
  - THINKING ABNORMAL [None]
  - DYSPNOEA [None]
  - EOSINOPHILIA [None]
  - BODY TEMPERATURE INCREASED [None]
